FAERS Safety Report 12982280 (Version 1)
Quarter: 2016Q4

REPORT INFORMATION
  Report Type: Spontaneous
  Country: US (occurrence: US)
  Receive Date: 20161129
  Receipt Date: 20161129
  Transmission Date: 20170207
  Serious: No
  Sender: FDA-Public Use
  Company Number: US-PFIZER INC-2016545948

PATIENT
  Sex: Male

DRUGS (1)
  1. XELJANZ [Suspect]
     Active Substance: TOFACITINIB CITRATE
     Dosage: 5 MG, UNK

REACTIONS (19)
  - Arthralgia [Unknown]
  - Fall [Unknown]
  - Joint injury [Unknown]
  - Memory impairment [Unknown]
  - Paraesthesia [Unknown]
  - Back pain [Unknown]
  - Gastrooesophageal reflux disease [Unknown]
  - Visual impairment [Unknown]
  - Headache [Unknown]
  - Insomnia [Unknown]
  - Lethargy [Unknown]
  - Feeling abnormal [Unknown]
  - Musculoskeletal stiffness [Unknown]
  - Sensation of foreign body [Unknown]
  - Hypoaesthesia [Unknown]
  - Fatigue [Unknown]
  - Depression [Unknown]
  - Dry eye [Unknown]
  - Dry mouth [Unknown]
